FAERS Safety Report 17412060 (Version 2)
Quarter: 2020Q1

REPORT INFORMATION
  Report Type: Spontaneous
  Country: HU (occurrence: HU)
  Receive Date: 20200213
  Receipt Date: 20200226
  Transmission Date: 20200409
  Serious: Yes (Hospitalization, Other)
  Sender: FDA-Public Use
  Company Number: HU-TEVA-2020-HU-1182878

PATIENT
  Sex: Male

DRUGS (3)
  1. BLEOMYCIN [Suspect]
     Active Substance: BLEOMYCIN SULFATE
     Indication: RETROPERITONEAL NEOPLASM METASTATIC
     Route: 065
     Dates: start: 201905
  2. CISPLATIN. [Suspect]
     Active Substance: CISPLATIN
     Indication: RETROPERITONEAL NEOPLASM METASTATIC
     Route: 065
     Dates: start: 201905
  3. ETOPOSIDE. [Suspect]
     Active Substance: ETOPOSIDE
     Indication: RETROPERITONEAL NEOPLASM METASTATIC
     Route: 065
     Dates: start: 201905

REACTIONS (4)
  - Abscess [Recovering/Resolving]
  - Myalgia [Recovering/Resolving]
  - Gait disturbance [Recovering/Resolving]
  - Pyrexia [Recovering/Resolving]

NARRATIVE: CASE EVENT DATE: 201905
